FAERS Safety Report 4305847-8 (Version None)
Quarter: 2004Q1

REPORT INFORMATION
  Report Type: 
  Country: None (occurrence: None)
  Receive Date: 20040226
  Receipt Date: 20010502
  Transmission Date: 20041129
  Serious: Yes (Other)
  Sender: FDA-Public Use
  Company Number: 011378

PATIENT
  Age: 20 Month
  Sex: Female
  Weight: 12.4739 kg

DRUGS (1)
  1. FEVERALL (ACETAMINOPHEN RECTAL SUPPOSITORIES), 80MG (ALPHARMA PHARMACE [Suspect]
     Indication: PYREXIA
     Dosage: 80 MG, 1 EVERY 4 HOURS S NEEDED, RECTAL
     Route: 054
     Dates: start: 20010222

REACTIONS (5)
  - FEBRILE CONVULSION [None]
  - LOSS OF CONSCIOUSNESS [None]
  - PYREXIA [None]
  - VIRAL INFECTION [None]
  - VOMITING [None]
